FAERS Safety Report 20363918 (Version 1)
Quarter: 2022Q1

REPORT INFORMATION
  Report Type: Spontaneous
  Country: US (occurrence: US)
  Receive Date: 20220121
  Receipt Date: 20220121
  Transmission Date: 20220423
  Serious: Yes (Other)
  Sender: FDA-Public Use
  Company Number: US-BAYER-2022A006292

PATIENT
  Age: 66 Year

DRUGS (2)
  1. SORAFENIB [Suspect]
     Active Substance: SORAFENIB
     Indication: Hepatocellular carcinoma
     Dosage: 200 MG, QD FOR 1 MONTH
     Route: 048
  2. REGORAFENIB [Suspect]
     Active Substance: REGORAFENIB
     Indication: Hepatocellular carcinoma
     Dosage: 80 MG, QD FOR 3 MONTHS
     Route: 048

REACTIONS (4)
  - Drug-induced liver injury [None]
  - Gastrointestinal haemorrhage [None]
  - Off label use [None]
  - Off label use [None]
